FAERS Safety Report 5354586-3 (Version None)
Quarter: 2007Q2

REPORT INFORMATION
  Report Type: 
  Country: None (occurrence: None)
  Receive Date: 20070611
  Receipt Date: 20070528
  Transmission Date: 20071010
  Serious: Yes (Death, Other)
  Sender: FDA-Public Use
  Company Number: FABR-11337

PATIENT
  Age: 47 Year
  Sex: Male
  Weight: 78 kg

DRUGS (8)
  1. FABRAZYME [Suspect]
     Indication: FABRY'S DISEASE
     Dosage: 80 MG Q2WKS IV
     Route: 042
     Dates: start: 20040517, end: 20051129
  2. ASPIRIN [Concomitant]
  3. LEVOTHYROXINE SODIUM [Concomitant]
  4. FAMOTIDINE [Concomitant]
  5. MAXACALCITOL [Concomitant]
  6. AMEZINIUM METILSULFATE [Concomitant]
  7. DROXIDOPA [Concomitant]
  8. CLOPERASTINE FENDIZOATE [Concomitant]

REACTIONS (7)
  - ATRIOVENTRICULAR BLOCK COMPLETE [None]
  - CARDIO-RESPIRATORY ARREST [None]
  - FOREIGN BODY TRAUMA [None]
  - INJURY ASPHYXIATION [None]
  - LOSS OF CONSCIOUSNESS [None]
  - MYOCARDIAL INFARCTION [None]
  - NASOPHARYNGITIS [None]
